FAERS Safety Report 5016973-2 (Version None)
Quarter: 2006Q2

REPORT INFORMATION
  Report Type: 
  Country: None (occurrence: None)
  Receive Date: 20060525
  Receipt Date: 20060511
  Transmission Date: 20061013
  Serious: Yes (Other)
  Sender: FDA-Public Use
  Company Number: 13375266

PATIENT
  Age: 58 Year
  Sex: Male

DRUGS (1)
  1. EMSAM [Suspect]
     Indication: DEPRESSION
     Dosage: TD

REACTIONS (6)
  - ANAPHYLACTOID REACTION [None]
  - ANXIETY [None]
  - CONDITION AGGRAVATED [None]
  - RASH GENERALISED [None]
  - TACHYCARDIA [None]
  - THROAT TIGHTNESS [None]
